FAERS Safety Report 5007173-0 (Version None)
Quarter: 2006Q1

REPORT INFORMATION
  Report Type: 
  Country: None (occurrence: None)
  Receive Date: 20060327
  Receipt Date: 20060104
  Transmission Date: 20060701
  Serious: Yes (Hospitalization)
  Sender: FDA-Public Use
  Company Number: 220796

PATIENT
  Age: 70 Year
  Sex: Male
  Weight: 78 kg

DRUGS (2)
  1. AVASTIN [Suspect]
     Indication: RENAL CELL CARCINOMA STAGE UNSPECIFIED
     Dosage: 780 MG, Q2W, INTRAVENOUS
     Route: 042
     Dates: start: 20051017
  2. INTRON A [Suspect]
     Dosage: 10 MIU, 3/WEEK, SUBCUTANEOUS
     Route: 058

REACTIONS (1)
  - EPISTAXIS [None]
